FAERS Safety Report 17219608 (Version 1)
Quarter: 2019Q4

REPORT INFORMATION
  Report Type: Spontaneous
  Country: DK (occurrence: DK)
  Receive Date: 20191231
  Receipt Date: 20191231
  Transmission Date: 20200122
  Serious: Yes (Hospitalization)
  Sender: FDA-Public Use
  Company Number: DK-TAKEDA-2019TUS073772

PATIENT
  Age: 36 Year
  Sex: Female

DRUGS (3)
  1. CALCIUM + VITAMIN D                /01483701/ [Concomitant]
     Active Substance: CALCIUM\VITAMIN D
     Indication: BLOOD CALCIUM DECREASED
     Dosage: 1 DOSAGE FORM, QD
     Route: 048
     Dates: start: 20160504
  2. ENTYVIO [Suspect]
     Active Substance: VEDOLIZUMAB
     Indication: COLITIS ULCERATIVE
     Dosage: 300 MILLIGRAM
     Route: 042
     Dates: start: 20190927
  3. PENTASA [Concomitant]
     Active Substance: MESALAMINE
     Indication: COLITIS ULCERATIVE
     Dosage: 4 GRAM, QD
     Route: 048
     Dates: start: 20171025

REACTIONS (6)
  - Thyroiditis subacute [Recovering/Resolving]
  - Pharyngeal swelling [Recovering/Resolving]
  - Hot flush [Recovering/Resolving]
  - Oropharyngeal pain [Recovering/Resolving]
  - Pulse abnormal [Recovering/Resolving]
  - Pyrexia [Recovering/Resolving]

NARRATIVE: CASE EVENT DATE: 201910
